FAERS Safety Report 25306055 (Version 1)
Quarter: 2025Q2

REPORT INFORMATION
  Report Type: Spontaneous
  Country: UA (occurrence: None)
  Receive Date: 20250513
  Receipt Date: 20250513
  Transmission Date: 20250716
  Serious: Yes (Death, Life-Threatening, Hospitalization, Other)
  Sender: ACS DOBFAR
  Company Number: UA-ACS-20250265

PATIENT
  Age: 4 Year
  Sex: Female
  Weight: 20 kg

DRUGS (2)
  1. CEFTRIAXONE [Suspect]
     Active Substance: CEFTRIAXONE
     Indication: Evidence based treatment
     Route: 030
  2. LIDOCAINE [Suspect]
     Active Substance: LIDOCAINE
     Route: 030

REACTIONS (1)
  - Kounis syndrome [Fatal]
